FAERS Safety Report 8623899-1 (Version None)
Quarter: 2012Q3

REPORT INFORMATION
  Report Type: 
  Country: None (occurrence: None)
  Receive Date: 20120827
  Receipt Date: 20120815
  Transmission Date: 20120928
  Serious: Yes (Hospitalization, Disabling, Other)
  Sender: FDA-Public Use
  Company Number: US-009507513-1207USA00054

PATIENT

DRUGS (5)
  1. FOSAMAX [Suspect]
     Indication: OSTEOPOROSIS
     Dosage: 70 MG, QW
     Route: 048
     Dates: start: 20031104, end: 20061129
  2. FERROUS SULFATE TAB [Concomitant]
     Dosage: UNK
     Dates: start: 19920101, end: 20120101
  3. VITAMIN D [Concomitant]
     Dosage: UNK
     Dates: start: 19920101, end: 20120101
  4. VITAMIN E [Concomitant]
     Dosage: UNK
     Dates: start: 19920101, end: 20120101
  5. ASCORBIC ACID [Concomitant]
     Dosage: UNK
     Dates: start: 19920101, end: 20120101

REACTIONS (34)
  - WEIGHT INCREASED [None]
  - BACK PAIN [None]
  - ORAL INFECTION [None]
  - GINGIVAL DISORDER [None]
  - BONE TRIMMING [None]
  - BONE DISORDER [None]
  - FEMUR FRACTURE [None]
  - SURGERY [None]
  - ABSCESS [None]
  - KNEE ARTHROPLASTY [None]
  - LOW TURNOVER OSTEOPATHY [None]
  - TOOTH DISORDER [None]
  - PERIODONTAL OPERATION [None]
  - KNEE DEFORMITY [None]
  - LEG AMPUTATION [None]
  - OSTEOPOROSIS [None]
  - INTRAMEDULLARY ROD INSERTION [None]
  - EDENTULOUS [None]
  - ORAL SURGERY [None]
  - INFECTION [None]
  - PHANTOM PAIN [None]
  - OSTEOARTHRITIS [None]
  - ARTHRALGIA [None]
  - SURGICAL FAILURE [None]
  - STRESS FRACTURE [None]
  - TEMPOROMANDIBULAR JOINT SYNDROME [None]
  - OSTEOPETROSIS [None]
  - FUNGAL INFECTION [None]
  - FALL [None]
  - DEPRESSION [None]
  - DENTAL CARIES [None]
  - IMPAIRED HEALING [None]
  - ENDODONTIC PROCEDURE [None]
  - DENTAL CARE [None]
